FAERS Safety Report 16143457 (Version 2)
Quarter: 2019Q2

REPORT INFORMATION
  Report Type: Report from Study
  Country: PE (occurrence: PE)
  Receive Date: 20190401
  Receipt Date: 20190410
  Transmission Date: 20190711
  Serious: Yes (Hospitalization)
  Sender: FDA-Public Use
  Company Number: PE-SA-2019SA085634

PATIENT
  Age: 74 Year
  Sex: Male

DRUGS (1)
  1. IRBESARTAN. [Suspect]
     Active Substance: IRBESARTAN
     Indication: ESSENTIAL HYPERTENSION
     Dosage: 150 MG, QD
     Route: 048
     Dates: start: 201901

REACTIONS (1)
  - Prostatitis [Recovered/Resolved]

NARRATIVE: CASE EVENT DATE: 20190325
